FAERS Safety Report 19823253 (Version 1)
Quarter: 2021Q3

REPORT INFORMATION
  Report Type: Other
  Country: US (occurrence: US)
  Receive Date: 20210913
  Receipt Date: 20210913
  Transmission Date: 20211014
  Serious: Yes (Life-Threatening)
  Sender: FDA-Public Use
  Company Number: US-NEPHRON PHARMACEUTICALS CORPORATION-2118300

PATIENT
  Sex: Female

DRUGS (1)
  1. KETOROLAC TROMETHAMINE 60MG/2ML [Suspect]
     Active Substance: KETOROLAC TROMETHAMINE
     Route: 030

REACTIONS (1)
  - Acute respiratory failure [Recovered/Resolved]
